FAERS Safety Report 21136560 (Version 1)
Quarter: 2022Q3

REPORT INFORMATION
  Report Type: Spontaneous
  Country: US (occurrence: None)
  Receive Date: 20220726
  Receipt Date: 20220726
  Transmission Date: 20221027
  Serious: Yes (Other)
  Sender: FDA-Public Use
  Company Number: None

PATIENT
  Age: 43 Year
  Sex: Female

DRUGS (2)
  1. EGRIFTA SV [Suspect]
     Active Substance: TESAMORELIN ACETATE
     Indication: HIV infection
     Dosage: 2MG ONCE DAILY INJECTION UNDER THE SKIN?
     Route: 058
     Dates: start: 20210330
  2. EGRIFTA SV [Suspect]
     Active Substance: TESAMORELIN ACETATE
     Indication: Lipodystrophy acquired

REACTIONS (3)
  - Hypoaesthesia [None]
  - Paraesthesia [None]
  - Peripheral swelling [None]

NARRATIVE: CASE EVENT DATE: 20220705
